FAERS Safety Report 7640812-4 (Version None)
Quarter: 2011Q3

REPORT INFORMATION
  Report Type: 
  Country: None (occurrence: None)
  Receive Date: 20110728
  Receipt Date: 20110509
  Transmission Date: 20111222
  Serious: No
  Sender: FDA-Public Use
  Company Number: US-MUTUAL PHARMACEUTICAL COMPANY, INC.-CLCY20110058

PATIENT
  Sex: Male
  Weight: 97.61 kg

DRUGS (3)
  1. LISINOPRIL [Concomitant]
     Indication: HYPERTENSION
     Route: 048
  2. ALLOPURINOL [Concomitant]
     Indication: BLOOD URIC ACID INCREASED
     Route: 048
  3. COLCRYS [Suspect]
     Indication: GOUT
     Route: 048
     Dates: start: 20110301

REACTIONS (3)
  - FATIGUE [None]
  - MYALGIA [None]
  - NIGHT SWEATS [None]
